FAERS Safety Report 24234482 (Version 2)
Quarter: 2024Q3

REPORT INFORMATION
  Report Type: Report from Study
  Country: TR (occurrence: TR)
  Receive Date: 20240821
  Receipt Date: 20240904
  Transmission Date: 20241016
  Serious: Yes (Death, Hospitalization)
  Sender: ABBVIE
  Company Number: TR-ABBVIE-5885795

PATIENT
  Sex: Female
  Weight: 60 kg

DRUGS (6)
  1. CARBIDOPA\LEVODOPA [Suspect]
     Active Substance: CARBIDOPA\LEVODOPA
     Indication: Parkinson^s disease
     Dosage: MORNING DOSE (ML): 8.00 CONTINUOUS DOSE (ML): 5.80 EXTRA DOSE (ML): 2.50
     Route: 050
     Dates: start: 20180627
  2. CARBIDOPA\LEVODOPA [Suspect]
     Active Substance: CARBIDOPA\LEVODOPA
  3. EUTHYROX [Concomitant]
     Active Substance: LEVOTHYROXINE SODIUM
     Indication: Hyperthyroidism
     Dosage: FORM STRENGTH: 150MICROGRAM
     Route: 048
  4. ELIQUIS [Concomitant]
     Active Substance: APIXABAN
     Indication: Anticoagulant therapy
     Dosage: FORM STRENGTH: 5MG
     Route: 048
  5. DOPADEX SR [Concomitant]
     Indication: Parkinson^s disease
     Dosage: 25/100 MG
     Route: 048
  6. KETYA [Concomitant]
     Indication: Depression
     Dosage: TIME INTERVAL: 0.33333333 DAYS: FORM STRENGTH: 25MG
     Route: 048

REACTIONS (2)
  - Urinary tract infection [Fatal]
  - Pneumonia aspiration [Fatal]

NARRATIVE: CASE EVENT DATE: 20240101
